FAERS Safety Report 8337221-1 (Version None)
Quarter: 2012Q2

REPORT INFORMATION
  Report Type: 
  Country: None (occurrence: None)
  Receive Date: 20120504
  Receipt Date: 20120426
  Transmission Date: 20120825
  Serious: Yes (Life-Threatening, Hospitalization)
  Sender: FDA-Public Use
  Company Number: FR-NOVOPROD-349994

PATIENT
  Age: 54 Year
  Sex: Male
  Weight: 117 kg

DRUGS (11)
  1. PAROXETINE HYDROCHLORIDE [Concomitant]
  2. OXAZEPAM [Concomitant]
  3. VICTOZA [Suspect]
     Indication: DIABETES MELLITUS
     Dosage: UNK
     Route: 065
     Dates: start: 20111001
  4. REPAGLINIDE [Concomitant]
  5. TRIMEPRAZINE TARTRATE [Concomitant]
  6. TORENTAL [Concomitant]
  7. AMLODIPINE BESYLATE [Concomitant]
  8. METFORMIN HCL [Concomitant]
  9. NOCTAMIDE [Concomitant]
  10. XANAX [Concomitant]
  11. COVERSYL                           /00790702/ [Concomitant]

REACTIONS (2)
  - THROMBOCYTOPENIA [None]
  - PANCREATITIS ACUTE [None]
